FAERS Safety Report 4483580-X (Version None)
Quarter: 2004Q4

REPORT INFORMATION
  Report Type: 
  Country: None (occurrence: None)
  Receive Date: 20041021
  Receipt Date: 20041021
  Transmission Date: 20050328
  Serious: No
  Sender: FDA-Public Use
  Company Number: None

PATIENT
  Age: 57 Year
  Sex: Male
  Weight: 82.1 kg

DRUGS (4)
  1. LEXAPRO [Suspect]
  2. METOPROLOL TARTRATE [Concomitant]
  3. MICONAZOLE NITRATE [Concomitant]
  4. RANITIDINE HCL [Concomitant]

REACTIONS (1)
  - HYPONATRAEMIA [None]
